FAERS Safety Report 9257105 (Version 1)
Quarter: 2013Q1

REPORT INFORMATION
  Report Type: Spontaneous
  Country: US (occurrence: None)
  Receive Date: 20121211
  Receipt Date: 20121211
  Transmission Date: 20140127
  Serious: Yes (Hospitalization)
  Sender: FDA-Public Use
  Company Number: FK201202582

PATIENT
  Age: 68 Year
  Sex: Female
  Weight: 93 kg

DRUGS (12)
  1. CARBOPLATIN [Suspect]
     Indication: OVARIAN CANCER
     Dosage: AUC 6, INTRAVENOUS (NOT OTHERWISE SPECIFIED)
     Route: 042
     Dates: start: 20111125
  2. PACLITAXEL (MANUFACTURER UNKNOWN) (PACLITAXEL) (PACLITAXEL) [Suspect]
     Indication: OVARIAN CANCER
     Dosage: 175 MG/M2, INTRAVENOUS (NOT OTHERWISE SPECIFIED)
     Route: 042
     Dates: start: 20111125
  3. MORAB-003 (FARLETUZUMAB) (FARLETUZUMAB) [Suspect]
     Indication: OVARIAN CANCER
     Dosage: 2.5 MG/KG, INTRAVENOUS (NOT OTHERWISE SPECIFIED)
     Route: 042
     Dates: start: 20111125
  4. ACETAMINOPHEN (PARACETAMOL) [Concomitant]
     Dosage: 650 MG
  5. ZOFRAN (ONDANSETRON) [Concomitant]
     Dosage: 12 MG
  6. JANUMET (SITAGLIPTIN PHOSPHATE) [Concomitant]
  7. AMARYL (GLIMEPIRIDE) [Concomitant]
  8. COREG (CARVEDILOL) [Concomitant]
  9. DIOVAN (CO-DIOVAN) [Concomitant]
  10. ZOCOR (SIMVASTATIN) [Concomitant]
  11. INSULIN (INSULIN) [Concomitant]
     Dosage: 2-8 UNITS, SUBCUTANEOUS
     Route: 058
  12. NEULASTA (PEGFILGRASTIM) [Concomitant]
     Dosage: 6 MG
     Dates: start: 20120113

REACTIONS (1)
  - Febrile neutropenia [None]
